FAERS Safety Report 7347355-6 (Version None)
Quarter: 2011Q1

REPORT INFORMATION
  Report Type: 
  Country: None (occurrence: None)
  Receive Date: 20110311
  Receipt Date: 20110309
  Transmission Date: 20110831
  Serious: Yes (Hospitalization)
  Sender: FDA-Public Use
  Company Number: IT-ROCHE-762424

PATIENT
  Sex: Male

DRUGS (3)
  1. AVASTIN [Suspect]
     Route: 042
     Dates: start: 20100913, end: 20101220
  2. IRINOTECAN [Suspect]
     Route: 042
     Dates: start: 20100913, end: 20101220
  3. FLUOROURACIL [Suspect]
     Route: 042
     Dates: start: 20100913, end: 20101220

REACTIONS (1)
  - ENTEROCUTANEOUS FISTULA [None]
